FAERS Safety Report 5809863-6 (Version None)
Quarter: 2008Q3

REPORT INFORMATION
  Report Type: 
  Country: None (occurrence: None)
  Receive Date: 20080715
  Receipt Date: 20080707
  Transmission Date: 20090109
  Serious: Yes (Congenital Anomaly, Other)
  Sender: FDA-Public Use
  Company Number: GB-BRISTOL-MYERS SQUIBB COMPANY-14262323

PATIENT
  Age: 30 Year
  Sex: Female

DRUGS (2)
  1. METFORMIN HCL [Suspect]
     Indication: POLYCYSTIC OVARIES
     Dates: end: 20080401
  2. FOLIC ACID [Concomitant]

REACTIONS (3)
  - HYPOPLASTIC LEFT HEART SYNDROME [None]
  - PREGNANCY [None]
  - TERATOGENICITY [None]
